FAERS Safety Report 8002612-5 (Version None)
Quarter: 2011Q4

REPORT INFORMATION
  Report Type: 
  Country: None (occurrence: None)
  Receive Date: 20111222
  Receipt Date: 20111215
  Transmission Date: 20120403
  Serious: Yes (Other)
  Sender: FDA-Public Use
  Company Number: BR-GLAXOSMITHKLINE-A0958970A

PATIENT
  Sex: Male

DRUGS (2)
  1. FLUTICASONE PROPIONATE/SALMETEROL [Suspect]
     Indication: ASTHMA
     Dosage: 1PUFF TWICE PER DAY
     Route: 055
     Dates: start: 20110901, end: 20111213
  2. NOVAMOXIN [Concomitant]
     Indication: SINUSITIS
     Dosage: 875MG TWICE PER DAY
     Route: 048
     Dates: start: 20111210

REACTIONS (5)
  - ASTHMA [None]
  - PRODUCT QUALITY ISSUE [None]
  - ASTHMATIC CRISIS [None]
  - SINUSITIS [None]
  - DRUG ADMINISTRATION ERROR [None]
